FAERS Safety Report 7434974-1 (Version None)
Quarter: 2011Q2

REPORT INFORMATION
  Report Type: 
  Country: None (occurrence: None)
  Receive Date: 20110425
  Receipt Date: 20110420
  Transmission Date: 20111010
  Serious: Yes (Death, Hospitalization, Other)
  Sender: FDA-Public Use
  Company Number: GB-ROCHE-760013

PATIENT
  Sex: Female
  Weight: 82 kg

DRUGS (5)
  1. ACETAMINOPHEN [Concomitant]
     Route: 048
  2. XELODA [Suspect]
     Route: 048
     Dates: start: 20101126, end: 20101209
  3. OMEPRAZOLE [Concomitant]
     Indication: ANTACID THERAPY
     Route: 048
  4. OXALIPLATIN [Suspect]
     Route: 042
     Dates: start: 20101126, end: 20101126
  5. DEXAMETHASONE [Concomitant]
     Route: 048

REACTIONS (5)
  - NEUTROPENIC SEPSIS [None]
  - COLITIS [None]
  - RENAL FAILURE ACUTE [None]
  - DEHYDRATION [None]
  - THROMBOCYTOPENIA [None]
